FAERS Safety Report 4984025-3 (Version None)
Quarter: 2006Q1

REPORT INFORMATION
  Report Type: 
  Country: None (occurrence: None)
  Receive Date: 20060301
  Receipt Date: 20051107
  Transmission Date: 20060701
  Serious: Yes (Other)
  Sender: FDA-Public Use
  Company Number: S05-USA-04874-01

PATIENT
  Age: 86 Year
  Sex: Female

DRUGS (5)
  1. NAMENDA [Suspect]
     Indication: AMNESIA
     Dosage: 10 MG BID PO
     Route: 048
  2. EFFEXOR [Concomitant]
  3. TRANXENE [Concomitant]
  4. MIRAPEX [Concomitant]
  5. TRAMADOL HCL [Concomitant]

REACTIONS (2)
  - DYSURIA [None]
  - UPPER RESPIRATORY TRACT INFECTION [None]
